FAERS Safety Report 8502627-4 (Version None)
Quarter: 2012Q3

REPORT INFORMATION
  Report Type: 
  Country: None (occurrence: None)
  Receive Date: 20120711
  Receipt Date: 20120704
  Transmission Date: 20120928
  Serious: Yes (Life-Threatening)
  Sender: FDA-Public Use
  Company Number: JP-PFIZER INC-2012162540

PATIENT
  Age: 79 Year
  Sex: Female

DRUGS (4)
  1. URSO 250 [Concomitant]
     Dosage: UNK
     Dates: start: 20120530
  2. BONALEN [Concomitant]
     Dosage: UNK
     Dates: start: 20080126, end: 20120515
  3. VESICARE [Suspect]
     Indication: HYPERTONIC BLADDER
     Dosage: 5 MG DAILY
     Route: 048
     Dates: start: 20110323, end: 20120515
  4. LIPITOR [Suspect]
     Indication: HYPERCHOLESTEROLAEMIA
     Dosage: 10 MG DAILY
     Route: 048
     Dates: start: 20080611, end: 20120515

REACTIONS (3)
  - HEPATIC FUNCTION ABNORMAL [None]
  - CARDIO-RESPIRATORY ARREST [None]
  - RHABDOMYOLYSIS [None]
